FAERS Safety Report 15348600 (Version 1)
Quarter: 2018Q3

REPORT INFORMATION
  Report Type: Spontaneous
  Country: US (occurrence: US)
  Receive Date: 20180904
  Receipt Date: 20180904
  Transmission Date: 20181010
  Serious: No
  Sender: FDA-Public Use
  Company Number: US-OREXO US, INC.-E2B_00000062

PATIENT
  Sex: Male
  Weight: 64 kg

DRUGS (3)
  1. ZUBSOLV [Suspect]
     Active Substance: BUPRENORPHINE HYDROCHLORIDE\NALOXONE HYDROCHLORIDE
     Indication: DRUG DEPENDENCE
     Dosage: 5.7/1.4 MG
     Route: 060
     Dates: start: 201706
  2. BUPRENORPHINE / NALOXONE [Suspect]
     Active Substance: BUPRENORPHINE\NALOXONE
     Dates: start: 201706, end: 201707
  3. ZUBSOLV [Suspect]
     Active Substance: BUPRENORPHINE HYDROCHLORIDE\NALOXONE HYDROCHLORIDE
     Dosage: 8.6/2.1 MG TWO AND A HALF TABLET

REACTIONS (5)
  - Constipation [Not Recovered/Not Resolved]
  - Cardiac disorder [Unknown]
  - Apathy [Unknown]
  - Treatment noncompliance [Unknown]
  - Drug dependence [Recovered/Resolved]
